FAERS Safety Report 9099835 (Version 1)
Quarter: 2013Q1

REPORT INFORMATION
  Report Type: Report from Study
  Country: AU (occurrence: AU)
  Receive Date: 20130214
  Receipt Date: 20130214
  Transmission Date: 20140127
  Serious: Yes (Other)
  Sender: FDA-Public Use
  Company Number: AU-ROCHE-1191061

PATIENT
  Sex: Male

DRUGS (2)
  1. ACTEMRA [Suspect]
     Indication: RHEUMATOID ARTHRITIS
     Route: 042
     Dates: start: 20120829
  2. PANADEINE FORTE [Concomitant]
     Indication: PAIN
     Route: 048

REACTIONS (2)
  - Diarrhoea [Recovering/Resolving]
  - Abdominal pain [Recovering/Resolving]
